FAERS Safety Report 26204167 (Version 1)
Quarter: 2025Q4

REPORT INFORMATION
  Report Type: Spontaneous
  Country: CA (occurrence: CA)
  Receive Date: 20251226
  Receipt Date: 20251226
  Transmission Date: 20260117
  Serious: Yes (Death, Other)
  Sender: FRESENIUS KABI
  Company Number: CA-FreseniusKabi-FK202517395

PATIENT
  Age: 27 Year
  Sex: Male

DRUGS (5)
  1. FENTANYL [Suspect]
     Active Substance: FENTANYL
     Indication: Product used for unknown indication
     Dosage: FOA-NOT SPECIFIED
  2. ALCOHOL [Suspect]
     Active Substance: ALCOHOL
     Indication: Product used for unknown indication
     Dosage: ROA-UNKNOWN
  3. OXYCODONE HYDROCHLORIDE [Suspect]
     Active Substance: OXYCODONE HYDROCHLORIDE
     Indication: Product used for unknown indication
     Route: 048
  4. OXYCONTIN [Suspect]
     Active Substance: OXYCODONE HYDROCHLORIDE
     Indication: Product used for unknown indication
     Dosage: TABLET (EXTENDED-RELEASE)
     Route: 048
  5. OXYMORPHONE HYDROCHLORIDE [Suspect]
     Active Substance: OXYMORPHONE HYDROCHLORIDE
     Indication: Product used for unknown indication
     Dosage: ROA-UNKNOWN

REACTIONS (10)
  - Accidental overdose [Fatal]
  - Asphyxia [Fatal]
  - Aspiration [Fatal]
  - Counterfeit product administered [Fatal]
  - Drug abuse [Fatal]
  - Drug dependence [Fatal]
  - Injury [Fatal]
  - Loss of consciousness [Fatal]
  - Toxicity to various agents [Fatal]
  - Unresponsive to stimuli [Fatal]
